FAERS Safety Report 4506846-3 (Version None)
Quarter: 2004Q4

REPORT INFORMATION
  Report Type: 
  Country: None (occurrence: None)
  Receive Date: 20041122
  Receipt Date: 20041116
  Transmission Date: 20050328
  Serious: Yes (Death)
  Sender: FDA-Public Use
  Company Number: PHEH2004US12483

PATIENT
  Sex: Female

DRUGS (6)
  1. ZOMETA [Suspect]
     Indication: BREAST CANCER METASTATIC
  2. HERCEPTIN [Concomitant]
  3. ALIMTA [Concomitant]
  4. CISPLATIN [Concomitant]
  5. DECADRON [Concomitant]
  6. LEUKINE [Concomitant]
     Dosage: MOUTHWASH

REACTIONS (1)
  - CEREBROVASCULAR ACCIDENT [None]
